FAERS Safety Report 5714490-5 (Version None)
Quarter: 2008Q2

REPORT INFORMATION
  Report Type: 
  Country: None (occurrence: None)
  Receive Date: 20080423
  Receipt Date: 20080416
  Transmission Date: 20081010
  Serious: Yes (Hospitalization, Other)
  Sender: FDA-Public Use
  Company Number: PHHY2008BE05810

PATIENT
  Age: 45 Year
  Sex: Female

DRUGS (2)
  1. EXJADE [Suspect]
     Indication: MYELOFIBROSIS
     Dosage: UNK, UNK
     Dates: start: 20070501, end: 20071101
  2. DRUG THERAPY NOS [Concomitant]

REACTIONS (5)
  - BLOOD CREATININE INCREASED [None]
  - BLOOD UREA INCREASED [None]
  - RECTAL HAEMORRHAGE [None]
  - RECTAL ULCER [None]
  - RENAL FAILURE [None]
